FAERS Safety Report 6059816-0 (Version None)
Quarter: 2009Q1

REPORT INFORMATION
  Report Type: 
  Country: None (occurrence: None)
  Receive Date: 20090130
  Receipt Date: 20080925
  Transmission Date: 20090719
  Serious: No
  Sender: FDA-Public Use
  Company Number: US-ABBOTT-08P-163-0478241-00

PATIENT
  Sex: Female
  Weight: 27.1 kg

DRUGS (3)
  1. LUPRON DEPOT [Suspect]
     Indication: PRECOCIOUS PUBERTY
     Route: 030
     Dates: start: 20080312
  2. SOMATROPIN [Concomitant]
     Indication: BLOOD GROWTH HORMONE
  3. LIDOCAINE [Concomitant]
     Indication: PAIN PROPHYLAXIS
     Dosage: 4% CREAM
     Route: 061
     Dates: start: 20080312

REACTIONS (2)
  - MALAISE [None]
  - PYREXIA [None]
